FAERS Safety Report 11003393 (Version 1)
Quarter: 2015Q2

REPORT INFORMATION
  Report Type: Spontaneous
  Country: US (occurrence: None)
  Receive Date: 20150402
  Receipt Date: 20150402
  Transmission Date: 20150821
  Serious: Yes (Other)
  Sender: FDA-Public Use
  Company Number: US-2014-11474

PATIENT

DRUGS (6)
  1. TOPOTECAN [Suspect]
     Active Substance: TOPOTECAN\TOPOTECAN HYDROCHLORIDE
     Indication: NEUROBLASTOMA
  2. BUSULFEX [Suspect]
     Active Substance: BUSULFAN
     Indication: NEUROBLASTOMA
  3. BUSULFEX [Suspect]
     Active Substance: BUSULFAN
     Indication: STEM CELL TRANSPLANT
  4. MELPHALAN (MELPHALAN) [Suspect]
     Active Substance: MELPHALAN
     Indication: STEM CELL TRANSPLANT
  5. MELPHALAN (MELPHALAN) [Suspect]
     Active Substance: MELPHALAN
     Indication: NEUROBLASTOMA
  6. TOPOTECAN [Suspect]
     Active Substance: TOPOTECAN\TOPOTECAN HYDROCHLORIDE
     Indication: STEM CELL TRANSPLANT

REACTIONS (4)
  - Drug administration error [None]
  - Mucosal inflammation [None]
  - Haemolysis [None]
  - Off label use [None]
